FAERS Safety Report 24841922 (Version 10)
Quarter: 2025Q4

REPORT INFORMATION
  Report Type: Report from Study
  Country: JP (occurrence: JP)
  Receive Date: 20250114
  Receipt Date: 20251231
  Transmission Date: 20260117
  Serious: Yes (Hospitalization, Other)
  Sender: JOHNSON AND JOHNSON
  Company Number: JP-JNJFOC-20241100190

PATIENT
  Age: 74 Year
  Sex: Male

DRUGS (10)
  1. ERLEADA [Suspect]
     Active Substance: APALUTAMIDE
     Indication: Prostate cancer metastatic
     Route: 048
     Dates: start: 20241023, end: 20241127
  2. ERLEADA [Suspect]
     Active Substance: APALUTAMIDE
     Route: 048
     Dates: start: 20241128, end: 20241218
  3. ERLEADA [Suspect]
     Active Substance: APALUTAMIDE
     Route: 048
     Dates: start: 20241219, end: 20241230
  4. ERLEADA [Suspect]
     Active Substance: APALUTAMIDE
     Dosage: DOSE UNKNOWN
     Route: 048
  5. KEYTRUDA [Suspect]
     Active Substance: PEMBROLIZUMAB
     Indication: Ureteric cancer
     Dosage: DOSE UNKNOWN
     Route: 041
     Dates: start: 20241127, end: 20241127
  6. KEYTRUDA [Suspect]
     Active Substance: PEMBROLIZUMAB
     Dosage: DOSE UNKNOWN
     Route: 041
     Dates: start: 20241218, end: 20241218
  7. TAMSULOSIN HYDROCHLORIDE [Concomitant]
     Active Substance: TAMSULOSIN HYDROCHLORIDE
     Indication: Pollakiuria
     Dosage: DOSE UNKNOWN
     Route: 048
  8. TAMSULOSIN HYDROCHLORIDE [Concomitant]
     Active Substance: TAMSULOSIN HYDROCHLORIDE
     Dosage: DOSE UNKNOWN
     Route: 048
  9. VALGANCICLOVIR HYDROCHLORIDE [Concomitant]
     Active Substance: VALGANCICLOVIR HYDROCHLORIDE
     Indication: Product used for unknown indication
     Dosage: DOSE UNKNOWN
     Route: 048
  10. ENFORTUMAB VEDOTIN [Concomitant]
     Active Substance: ENFORTUMAB VEDOTIN
     Indication: Ureteric cancer
     Dosage: DOSE UNKNOWN

REACTIONS (18)
  - Dry skin [Recovered/Resolved]
  - Toxic epidermal necrolysis [Recovered/Resolved]
  - Hepatic function abnormal [Not Recovered/Not Resolved]
  - Renal function test abnormal [Recovered/Resolved]
  - Thrombosis [Recovered/Resolved]
  - Metastases to lung [Not Recovered/Not Resolved]
  - Hot flush [Not Recovered/Not Resolved]
  - Postoperative wound infection [Recovered/Resolved]
  - Diarrhoea [Recovered/Resolved]
  - Chapped lips [Not Recovered/Not Resolved]
  - Abdominal discomfort [Not Recovered/Not Resolved]
  - Erythema [Recovering/Resolving]
  - Pruritus [Recovering/Resolving]
  - Fatigue [Not Recovered/Not Resolved]
  - Muscular weakness [Recovering/Resolving]
  - Arthropathy [Recovering/Resolving]
  - Weight decreased [Recovering/Resolving]
  - Hepatitis B DNA assay positive [Not Recovered/Not Resolved]

NARRATIVE: CASE EVENT DATE: 20240101
